FAERS Safety Report 20474171 (Version 1)
Quarter: 2022Q1

REPORT INFORMATION
  Report Type: Report from Study
  Country: FR (occurrence: FR)
  Receive Date: 20220215
  Receipt Date: 20220215
  Transmission Date: 20220424
  Serious: Yes (Hospitalization)
  Sender: FDA-Public Use
  Company Number: FR-SERVIER-S21008673

PATIENT

DRUGS (10)
  1. PEGASPARGASE [Suspect]
     Active Substance: PEGASPARGASE
     Indication: Acute lymphocytic leukaemia
     Dosage: 5100 IU ON D4
     Route: 042
     Dates: start: 20210423, end: 20210423
  2. ADRIAMYCIN [Suspect]
     Active Substance: DOXORUBICIN HYDROCHLORIDE
     Indication: Acute lymphocytic leukaemia
     Dosage: 62 MG ON D1, D8, D15, AND D22
     Route: 042
     Dates: start: 20210420, end: 20210511
  3. VINCRISTINE [Suspect]
     Active Substance: VINCRISTINE
     Indication: Acute lymphocytic leukaemia
     Dosage: 2 MG ON D1, D8, D15, AND D22
     Route: 042
     Dates: start: 20210420, end: 20210511
  4. METHOTREXATE [Suspect]
     Active Substance: METHOTREXATE
     Indication: Acute lymphocytic leukaemia
     Dosage: 15 MG ON D4, D31
     Route: 037
     Dates: start: 20210423, end: 20210520
  5. DEXAMETHASONE [Suspect]
     Active Substance: DEXAMETHASONE
     Indication: Acute lymphocytic leukaemia
     Dosage: 22.5 MG ON D1-D7 AND D15-D21
     Route: 048
     Dates: start: 20210420, end: 20210510
  6. CYCLOPHOSPHAMIDE [Suspect]
     Active Substance: CYCLOPHOSPHAMIDE
     Indication: Acute lymphocytic leukaemia
     Dosage: 1 G/M2/DAY (2200 MG)
     Route: 042
     Dates: start: 20210518, end: 20210518
  7. THIOGUANINE [Suspect]
     Active Substance: THIOGUANINE
     Indication: Acute lymphocytic leukaemia
     Dosage: 160 MG, D29 TO D42
     Route: 048
     Dates: start: 20210518
  8. CYTARABINE [Suspect]
     Active Substance: CYTARABINE
     Indication: Acute lymphocytic leukaemia
     Dosage: 30 MG ON D4 AND D31
     Route: 037
     Dates: start: 20210423, end: 20210520
  9. CYTARABINE [Suspect]
     Active Substance: CYTARABINE
     Dosage: 17.5 MG ON D31-D34 AND D38-D41
     Route: 042
     Dates: start: 20210518
  10. HYDROCORTISONE [Suspect]
     Active Substance: HYDROCORTISONE
     Indication: Acute lymphocytic leukaemia
     Dosage: 15 MG
     Route: 037
     Dates: start: 20210423, end: 20210520

REACTIONS (1)
  - Staphylococcal sepsis [Recovered/Resolved]

NARRATIVE: CASE EVENT DATE: 20210521
